FAERS Safety Report 15519523 (Version 1)
Quarter: 2018Q4

REPORT INFORMATION
  Report Type: Spontaneous
  Country: MX (occurrence: MX)
  Receive Date: 20181017
  Receipt Date: 20181017
  Transmission Date: 20190205
  Serious: Yes (Other)
  Sender: FDA-Public Use
  Company Number: MX-ALLERGAN-1849172US

PATIENT
  Age: 39 Year
  Sex: Female

DRUGS (2)
  1. DEXAMETHASONE W/TOBRAMYCIN [Suspect]
     Active Substance: DEXAMETHASONE\TOBRAMYCIN
     Indication: BLEPHARITIS
     Dosage: UNKNOWN, EYE DROPS
     Route: 061
  2. PREDNISOLONE UNK [Suspect]
     Active Substance: PREDNISOLONE
     Indication: BLEPHARITIS
     Dosage: UNK, EYE DROPS
     Route: 061

REACTIONS (5)
  - Off label use [Unknown]
  - Visual field defect [Recovering/Resolving]
  - Self-medication [Unknown]
  - Corneal disorder [Unknown]
  - Keratopathy [Recovering/Resolving]
